FAERS Safety Report 5715187-8 (Version None)
Quarter: 2008Q2

REPORT INFORMATION
  Report Type: 
  Country: None (occurrence: None)
  Receive Date: 20080423
  Receipt Date: 20080414
  Transmission Date: 20081010
  Serious: Yes (Hospitalization)
  Sender: FDA-Public Use
  Company Number: US-PFIZER INC-2008029791

PATIENT
  Age: 82 Year
  Sex: Female

DRUGS (5)
  1. ZYVOX [Suspect]
     Indication: CELLULITIS
  2. EFFEXOR [Suspect]
  3. CARDIOVASCULAR SYSTEM DRUGS [Concomitant]
  4. INSULIN [Concomitant]
  5. DRUG, UNSPECIFIED [Concomitant]
     Indication: THYROID DISORDER

REACTIONS (5)
  - ABDOMINAL PAIN UPPER [None]
  - APPETITE DISORDER [None]
  - BACK PAIN [None]
  - DYSARTHRIA [None]
  - SOMNOLENCE [None]
